FAERS Safety Report 8190393-4 (Version None)
Quarter: 2012Q1

REPORT INFORMATION
  Report Type: 
  Country: None (occurrence: None)
  Receive Date: 20120221
  Receipt Date: 20111216
  Transmission Date: 20120608
  Serious: No
  Sender: FDA-Public Use
  Company Number: 1000026355

PATIENT
  Age: 48 Year
  Sex: Female

DRUGS (2)
  1. CENESTIN (ESTROGENS CONJUGATED) (ESTROGENS CONJUGATED) [Concomitant]
  2. VIIBRYD [Suspect]
     Indication: DEPRESSION
     Dosage: 10 MG (10 MG, 1 IN 1 D), ORAL
     Route: 048
     Dates: start: 20111130, end: 20111206

REACTIONS (4)
  - PALPITATIONS [None]
  - RASH [None]
  - BURNING SENSATION [None]
  - PRURITUS [None]
